FAERS Safety Report 6643989-2 (Version None)
Quarter: 2010Q1

REPORT INFORMATION
  Report Type: 
  Country: None (occurrence: None)
  Receive Date: 20100304
  Receipt Date: 20091016
  Transmission Date: 20100710
  Serious: Yes (Other)
  Sender: FDA-Public Use
  Company Number: 20091016CINRY1201

PATIENT
  Age: 76 Year
  Sex: Female

DRUGS (3)
  1. CINRYZE [Suspect]
     Indication: HEREDITARY ANGIOEDEMA
     Dosage: (1000 UNIT, MONDAYS AND FRIDAYS), INTRAVENOUS
     Route: 042
  2. CINRYZE [Suspect]
     Indication: PROPHYLAXIS
     Dosage: (1000 UNIT, MONDAYS AND FRIDAYS), INTRAVENOUS
     Route: 042
  3. INFLUENZA VACCINE (INFLUENZA VACCINE) [Concomitant]

REACTIONS (2)
  - HEREDITARY ANGIOEDEMA [None]
  - INAPPROPRIATE SCHEDULE OF DRUG ADMINISTRATION [None]
